FAERS Safety Report 11352007 (Version 1)
Quarter: 2015Q3

REPORT INFORMATION
  Report Type: Spontaneous
  Country: US (occurrence: US)
  Receive Date: 20150807
  Receipt Date: 20150807
  Transmission Date: 20151125
  Serious: No
  Sender: FDA-Public Use
  Company Number: US-JNJFOC-20150323703

PATIENT
  Sex: Female

DRUGS (3)
  1. ZYRTEC D ALLERGY AND CONGESTION [Suspect]
     Active Substance: CETIRIZINE HYDROCHLORIDE\PSEUDOEPHEDRINE HYDROCHLORIDE
     Indication: MIGRAINE
     Dosage: ZYRTEC-D 12 HOUR TWICE A DAY ALL YEAR LONG OR THE GENERIC
     Route: 065
  2. ZYRTEC D ALLERGY AND CONGESTION [Suspect]
     Active Substance: CETIRIZINE HYDROCHLORIDE\PSEUDOEPHEDRINE HYDROCHLORIDE
     Indication: SINUS HEADACHE
     Dosage: ZYRTEC-D 12 HOUR TWICE A DAY ALL YEAR LONG OR THE GENERIC
     Route: 065
  3. ZYRTEC D ALLERGY AND CONGESTION [Suspect]
     Active Substance: CETIRIZINE HYDROCHLORIDE\PSEUDOEPHEDRINE HYDROCHLORIDE
     Indication: HYPERSENSITIVITY
     Dosage: ZYRTEC-D 12 HOUR TWICE A DAY ALL YEAR LONG OR THE GENERIC
     Route: 065

REACTIONS (3)
  - Product use issue [Unknown]
  - Intentional product use issue [Unknown]
  - Therapeutic response unexpected [Unknown]
